FAERS Safety Report 5351218-5 (Version None)
Quarter: 2007Q2

REPORT INFORMATION
  Report Type: 
  Country: None (occurrence: None)
  Receive Date: 20070608
  Receipt Date: 20070529
  Transmission Date: 20071010
  Serious: Yes (Other)
  Sender: FDA-Public Use
  Company Number: US-PFIZER INC-2007043819

PATIENT
  Sex: Female
  Weight: 72.727 kg

DRUGS (4)
  1. CELEBREX [Suspect]
     Indication: BACK INJURY
     Dates: start: 20070527, end: 20070528
  2. IMURAN [Concomitant]
  3. MESTINON [Concomitant]
  4. MIRAPEX [Concomitant]

REACTIONS (2)
  - EYE DISORDER [None]
  - SKIN TIGHTNESS [None]
